FAERS Safety Report 7442833-3 (Version None)
Quarter: 2011Q2

REPORT INFORMATION
  Report Type: 
  Country: None (occurrence: None)
  Receive Date: 20110425
  Receipt Date: 20110425
  Transmission Date: 20111010
  Serious: Yes (Hospitalization)
  Sender: FDA-Public Use
  Company Number: None

PATIENT
  Age: 73 Year
  Sex: Female
  Weight: 82.5547 kg

DRUGS (2)
  1. PRIVIGEN [Suspect]
     Dosage: 10GM EVERY 2 WEEKS IV ONE DOSE
     Route: 042
  2. PRIVIGEN [Suspect]
     Indication: IMMUNODEFICIENCY
     Dosage: 20GM EVERY 2 WEEKS IV ONE DOSE
     Route: 042

REACTIONS (3)
  - DYSARTHRIA [None]
  - HYPOAESTHESIA [None]
  - TRANSIENT ISCHAEMIC ATTACK [None]
